FAERS Safety Report 4847550-1 (Version None)
Quarter: 2005Q4

REPORT INFORMATION
  Report Type: 
  Country: None (occurrence: None)
  Receive Date: 20051205
  Receipt Date: 20051118
  Transmission Date: 20060501
  Serious: Yes (Hospitalization, Other)
  Sender: FDA-Public Use
  Company Number: USA-2005-0020848

PATIENT
  Age: 60 Year
  Sex: Female

DRUGS (19)
  1. OXYCONTIN [Suspect]
     Indication: PAIN
  2. OXYCODONE HCL [Concomitant]
  3. MORPHINE SULFATE [Concomitant]
  4. THEO-DUR [Concomitant]
  5. AMBIEN [Concomitant]
  6. ALBUTEROL [Concomitant]
  7. PREDNISONE [Concomitant]
  8. SKELAXIN [Concomitant]
  9. RESTORIL [Concomitant]
  10. SOLU-MEDROL [Concomitant]
  11. ZANAFLEX [Concomitant]
  12. CELEXA [Concomitant]
  13. ATIVAN [Concomitant]
  14. DILAUDID [Concomitant]
  15. VERSED [Concomitant]
  16. DEMEROL [Concomitant]
  17. BEXTRA [Concomitant]
  18. LEVAQUIN [Concomitant]
  19. THEOPHYLLINE [Concomitant]

REACTIONS (42)
  - ADJUSTMENT DISORDER [None]
  - AGITATION [None]
  - ANXIETY [None]
  - ARTHRALGIA [None]
  - ASTHMA [None]
  - BACK PAIN [None]
  - BURNING SENSATION [None]
  - CHEST PAIN [None]
  - CHRONIC OBSTRUCTIVE PULMONARY DISEASE [None]
  - CONDITION AGGRAVATED [None]
  - DELUSIONAL DISORDER, UNSPECIFIED TYPE [None]
  - DEVICE MIGRATION [None]
  - DRUG DEPENDENCE [None]
  - DRUG TOLERANCE [None]
  - DRUG WITHDRAWAL SYNDROME [None]
  - DYSPNOEA [None]
  - EMOTIONAL DISTRESS [None]
  - ERYTHEMA [None]
  - FALL [None]
  - GANGLION [None]
  - GROIN PAIN [None]
  - INJURY [None]
  - MAJOR DEPRESSION [None]
  - MALNUTRITION [None]
  - MENTAL DISORDER [None]
  - NAUSEA [None]
  - NICOTINE DEPENDENCE [None]
  - OBSESSIVE-COMPULSIVE DISORDER [None]
  - OEDEMA PERIPHERAL [None]
  - PAIN [None]
  - PAIN IN EXTREMITY [None]
  - PARANOIA [None]
  - PRODUCTIVE COUGH [None]
  - PYREXIA [None]
  - RADIUS FRACTURE [None]
  - REFUSAL OF TREATMENT BY PATIENT [None]
  - RESPIRATORY DISTRESS [None]
  - SHOULDER PAIN [None]
  - STATUS ASTHMATICUS [None]
  - UPPER EXTREMITY MASS [None]
  - VOMITING [None]
  - WHEEZING [None]
